FAERS Safety Report 10159081 (Version 1)
Quarter: 2014Q2

REPORT INFORMATION
  Report Type: Report from Study
  Country: CA (occurrence: CA)
  Receive Date: 20140508
  Receipt Date: 20140508
  Transmission Date: 20141212
  Serious: Yes (Other)
  Sender: FDA-Public Use
  Company Number: CA-UCBSA-120305

PATIENT
  Sex: Male

DRUGS (5)
  1. CIMZIA [Suspect]
     Indication: ANKYLOSING SPONDYLITIS
     Route: 058
     Dates: start: 20111227
  2. CIMZIA [Suspect]
     Indication: ANKYLOSING SPONDYLITIS
     Dosage: EVERY  2 WKS X 3
     Route: 058
     Dates: start: 20111115, end: 20111213
  3. PANTOLOC [Concomitant]
     Indication: PROPHYLAXIS AGAINST GASTROINTESTINAL ULCER
     Route: 048
  4. MULTIVITAMINS [Concomitant]
     Indication: SUPPLEMENTATION THERAPY
     Route: 048
  5. VALTREX [Concomitant]
     Indication: ORAL HERPES
     Dosage: TWICE DAILY
     Route: 048

REACTIONS (1)
  - Cataract [Not Recovered/Not Resolved]
